FAERS Safety Report 11496313 (Version 4)
Quarter: 2015Q4

REPORT INFORMATION
  Report Type: Report from Study
  Country: GB (occurrence: GB)
  Receive Date: 20150911
  Receipt Date: 20151218
  Transmission Date: 20160304
  Serious: Yes (Hospitalization, Other)
  Sender: FDA-Public Use
  Company Number: GB-GSKJP-GB2015115033AA

PATIENT
  Age: 62 Year
  Sex: Male

DRUGS (6)
  1. GLYCERYL TRINITRATE [Concomitant]
     Active Substance: NITROGLYCERIN
     Indication: CORONARY ARTERY DISEASE
     Dosage: 400 004 PRN
     Route: 060
     Dates: start: 201401
  2. FLUTICASONE FUROATE + VILANTEROL TRIFENATATE [Suspect]
     Active Substance: FLUTICASONE FUROATE\VILANTEROL TRIFENATATE
     Indication: CHRONIC OBSTRUCTIVE PULMONARY DISEASE
     Dosage: 100/25 UG DAILY
     Route: 055
     Dates: start: 20140925
  3. RANOLAZINE [Concomitant]
     Active Substance: RANOLAZINE
     Indication: CORONARY ARTERY DISEASE
     Dosage: 375 003 BID
     Route: 048
     Dates: start: 20150715, end: 20150810
  4. VENTOLIN [Concomitant]
     Active Substance: ALBUTEROL SULFATE
     Indication: CHRONIC OBSTRUCTIVE PULMONARY DISEASE
     Dosage: 200 004 PRN
     Route: 055
     Dates: start: 20110830
  5. ATORVASTATIN [Concomitant]
     Active Substance: ATORVASTATIN
     Indication: HYPERCHOLESTEROLAEMIA
     Dosage: 80 003 OD
     Route: 048
     Dates: start: 20140205
  6. SPIRIVA (TIOTROPIUM) [Concomitant]
     Indication: CHRONIC OBSTRUCTIVE PULMONARY DISEASE
     Dosage: 18 004 OD
     Route: 055
     Dates: end: 20140924

REACTIONS (2)
  - Lower respiratory tract infection [Recovered/Resolved]
  - Angina pectoris [Recovered/Resolved]

NARRATIVE: CASE EVENT DATE: 20150804
